FAERS Safety Report 5896862-1 (Version None)
Quarter: 2008Q3

REPORT INFORMATION
  Report Type: 
  Country: None (occurrence: None)
  Receive Date: 20080924
  Receipt Date: 20071031
  Transmission Date: 20090109
  Serious: No
  Sender: FDA-Public Use
  Company Number: US-BAYER-200714216BWH

PATIENT
  Age: 53 Year
  Sex: Male
  Weight: 71 kg

DRUGS (6)
  1. AVELOX [Suspect]
     Indication: DRUG USE FOR UNKNOWN INDICATION
     Route: 048
  2. MULTI-VITAMIN [Concomitant]
  3. CALCIUM GLUCONATE [Concomitant]
  4. GARLIQUE (GARLIC) [Concomitant]
  5. ANDROGEL [Concomitant]
     Indication: BLOOD TESTOSTERONE DECREASED
     Dosage: TOTAL DAILY DOSE: 5 G
     Route: 062
     Dates: start: 20071005
  6. FISH OIL [Concomitant]

REACTIONS (1)
  - MYALGIA [None]
